FAERS Safety Report 5903813-X (Version None)
Quarter: 2008Q3

REPORT INFORMATION
  Report Type: 
  Country: None (occurrence: None)
  Receive Date: 20080930
  Receipt Date: 20080916
  Transmission Date: 20090109
  Serious: Yes (Other)
  Sender: FDA-Public Use
  Company Number: US-ELI_LILLY_AND_COMPANY-US200809003594

PATIENT
  Sex: Female

DRUGS (3)
  1. EVISTA [Suspect]
     Indication: BONE DISORDER
     Dosage: UNK, UNKNOWN
     Route: 065
     Dates: start: 20060101
  2. EVISTA [Suspect]
     Dosage: UNK, UNKNOWN
     Route: 065
     Dates: end: 20080101
  3. EVISTA [Suspect]
     Dosage: UNK, UNKNOWN
     Route: 065
     Dates: start: 20080901, end: 20080901

REACTIONS (2)
  - HAEMATEMESIS [None]
  - THERAPEUTIC RESPONSE UNEXPECTED [None]
